FAERS Safety Report 13632986 (Version 1)
Quarter: 2017Q2

REPORT INFORMATION
  Report Type: Spontaneous
  Country: TW (occurrence: TW)
  Receive Date: 20170609
  Receipt Date: 20170609
  Transmission Date: 20170830
  Serious: Yes (Other)
  Sender: FDA-Public Use
  Company Number: TW-MACLEODS PHARMACEUTICALS US LTD-MAC2017005134

PATIENT

DRUGS (5)
  1. BISOPROLOL [Suspect]
     Active Substance: BISOPROLOL
     Indication: HYPERTENSION
     Dosage: UNK
     Route: 065
  2. ALPRAZOLAM. [Suspect]
     Active Substance: ALPRAZOLAM
     Indication: HYPERTENSION
     Dosage: UNK
     Route: 065
  3. AMLODIPINE BESYLATE. [Suspect]
     Active Substance: AMLODIPINE BESYLATE
     Indication: HYPERTENSION
     Dosage: UNK
     Route: 065
  4. ACEMETACIN [Concomitant]
     Active Substance: ACEMETACIN
     Indication: SPINAL OSTEOARTHRITIS
     Dosage: UNK
     Route: 065
  5. MEPHENOXALONE [Concomitant]
     Active Substance: MEPHENOXALONE
     Indication: SPINAL OSTEOARTHRITIS
     Dosage: UNK
     Route: 065

REACTIONS (5)
  - Lymphoproliferative disorder [Recovered/Resolved]
  - Pseudolymphoma [Recovered/Resolved]
  - Rash erythematous [Recovered/Resolved]
  - Papule [Recovered/Resolved]
  - Rash pruritic [Recovered/Resolved]
